FAERS Safety Report 8954134 (Version 1)
Quarter: 2012Q4

REPORT INFORMATION
  Report Type: 
  Country: US (occurrence: US)
  Receive Date: 20121207
  Receipt Date: 20121207
  Transmission Date: 20130627
  Serious: No
  Sender: FDA-Public Use
  Company Number: US-GLAXOSMITHKLINE-A0994235A

PATIENT
  Age: 74 Year
  Sex: Female

DRUGS (1)
  1. HYCAMTIN [Suspect]
     Indication: PRODUCT USED FOR UNKNOWN INDICATION
     Dosage: 4MG Per day
     Route: 048

REACTIONS (4)
  - Diarrhoea [Recovered/Resolved]
  - Epistaxis [Unknown]
  - Rhinorrhoea [Not Recovered/Not Resolved]
  - Sinus disorder [Unknown]
